FAERS Safety Report 9500105 (Version 1)
Quarter: 2013Q4

REPORT INFORMATION
  Report Type: Spontaneous
  Country: US (occurrence: None)
  Receive Date: 20130904
  Receipt Date: 20130904
  Transmission Date: 20140711
  Serious: Yes (Hospitalization)
  Sender: FDA-Public Use
  Company Number: None

PATIENT
  Age: 61 Year
  Sex: Female
  Weight: 76.5 kg

DRUGS (1)
  1. FOLFOX ABRAXANE [Suspect]
     Indication: PANCREATIC CARCINOMA
     Dosage: IV  Q2 WEEKS
     Route: 042

REACTIONS (6)
  - Hypotension [None]
  - Electrolyte imbalance [None]
  - Staphylococcal bacteraemia [None]
  - Enterobacter test positive [None]
  - Urinary tract infection [None]
  - Confusional state [None]
